FAERS Safety Report 4390521-2 (Version None)
Quarter: 2004Q2

REPORT INFORMATION
  Report Type: 
  Country: None (occurrence: None)
  Receive Date: 20040630
  Receipt Date: 20040615
  Transmission Date: 20050107
  Serious: Yes (Death, Hospitalization, Other)
  Sender: FDA-Public Use
  Company Number: 2004-06-0971

PATIENT
  Age: 48 Year
  Sex: Male
  Weight: 57.6068 kg

DRUGS (2)
  1. PEG-INTRON [Suspect]
     Indication: HEPATITIS C
     Dosage: 80 MCG SUBCUTANEOUS
     Route: 058
     Dates: start: 20030307, end: 20040123
  2. REBETOL [Suspect]
     Indication: HEPATITIS C
     Dosage: 800 MG QD ORAL
     Route: 048
     Dates: start: 20030307, end: 20040123

REACTIONS (21)
  - ARRHYTHMIA [None]
  - ASCITES [None]
  - ASTHENIA [None]
  - BLOOD PRESSURE DECREASED [None]
  - BRAIN HYPOXIA [None]
  - CARDIO-RESPIRATORY ARREST [None]
  - CHRONIC OBSTRUCTIVE AIRWAYS DISEASE [None]
  - DYSPNOEA [None]
  - GASTROINTESTINAL DISORDER [None]
  - HAEMOPTYSIS [None]
  - HEPATITIS C POSITIVE [None]
  - HYPERTHYROIDISM [None]
  - INFECTION [None]
  - INFLUENZA LIKE ILLNESS [None]
  - LIVER DISORDER [None]
  - MENTAL DISORDER [None]
  - MOVEMENT DISORDER [None]
  - PNEUMONIA [None]
  - RED BLOOD CELL ABNORMALITY [None]
  - SWELLING [None]
  - WEIGHT DECREASED [None]
